FAERS Safety Report 18718828 (Version 2)
Quarter: 2021Q1

REPORT INFORMATION
  Report Type: Report from Study
  Country: US (occurrence: US)
  Receive Date: 20210108
  Receipt Date: 20210203
  Transmission Date: 20210419
  Serious: Yes (Death, Hospitalization)
  Sender: FDA-Public Use
  Company Number: US-MYLANLABS-2019M1065370

PATIENT
  Age: 72 Year
  Sex: Female

DRUGS (1)
  1. CLOZAPINE. [Suspect]
     Active Substance: CLOZAPINE
     Indication: PRODUCT USED FOR UNKNOWN INDICATION
     Dosage: UNK

REACTIONS (4)
  - Death [Fatal]
  - Sepsis [Unknown]
  - Urinary tract infection [Unknown]
  - Neutrophil count increased [Not Recovered/Not Resolved]

NARRATIVE: CASE EVENT DATE: 20201030
